FAERS Safety Report 10264850 (Version 12)
Quarter: 2018Q1

REPORT INFORMATION
  Report Type: Report from Study
  Country: ES (occurrence: ES)
  Receive Date: 20140627
  Receipt Date: 20180125
  Transmission Date: 20180508
  Serious: Yes (Hospitalization)
  Sender: FDA-Public Use
  Company Number: ES-ROCHE-1423579

PATIENT
  Age: 68 Year
  Sex: Female
  Weight: 75 kg

DRUGS (21)
  1. OMEPRAZOLE. [Concomitant]
     Active Substance: OMEPRAZOLE
     Route: 065
     Dates: start: 20151026, end: 20160919
  2. SINGULAIR [Concomitant]
     Active Substance: MONTELUKAST SODIUM
  3. ATROVENT [Concomitant]
     Active Substance: IPRATROPIUM BROMIDE
     Dosage: DOSE 6 INH
     Route: 065
     Dates: start: 20151026, end: 20160919
  4. OMEPRAZOLE. [Concomitant]
     Active Substance: OMEPRAZOLE
     Route: 065
  5. AERIUS (SPAIN) [Concomitant]
     Indication: URINARY TRACT INFECTION BACTERIAL
  6. OBINUTUZUMAB. [Suspect]
     Active Substance: OBINUTUZUMAB
     Indication: CHRONIC LYMPHOCYTIC LEUKAEMIA
     Route: 042
     Dates: start: 20140617
  7. RANITIDINE. [Concomitant]
     Active Substance: RANITIDINE
     Route: 065
  8. PULMICORT TURBUHALER [Concomitant]
     Active Substance: BUDESONIDE
     Dosage: TURBUHAULER?DOSE 1 INH
     Route: 065
     Dates: start: 20151026, end: 20160919
  9. SIMVASTATIN. [Concomitant]
     Active Substance: SIMVASTATIN
     Route: 065
     Dates: start: 20151026, end: 20160919
  10. XALACOM [Concomitant]
     Active Substance: LATANOPROST\TIMOLOL MALEATE
  11. PANTOPRAZOL [Concomitant]
     Active Substance: PANTOPRAZOLE SODIUM
  12. AERIUS (SPAIN) [Concomitant]
     Indication: PYREXIA
     Route: 065
     Dates: start: 20150404, end: 20150410
  13. ITRACONAZOLE. [Concomitant]
     Active Substance: ITRACONAZOLE
     Route: 065
     Dates: start: 20151026, end: 20160919
  14. GLICAZIDA [Concomitant]
     Active Substance: GLICLAZIDE
  15. RILAST [Concomitant]
     Active Substance: BUDESONIDE\FORMOTEROL
     Route: 065
  16. BENDAMUSTINE [Suspect]
     Active Substance: BENDAMUSTINE
     Indication: CHRONIC LYMPHOCYTIC LEUKAEMIA
     Dosage: ON DAYS 2 AND 3 OF CYCLE 1 AND ON DAYS 1 AND 2 OF SUBSEQUENT CYCLES, AT 70 MILLIGRAMS PER SQUARE MET
     Route: 042
     Dates: start: 20140618, end: 20141203
  17. SYMBICORT [Concomitant]
     Active Substance: BUDESONIDE\FORMOTEROL FUMARATE DIHYDRATE
     Dosage: TURBUHALER , DOSE 4 INH
     Route: 065
     Dates: start: 20151026, end: 20160919
  18. AERIUS (SPAIN) [Concomitant]
     Indication: BRONCHITIS
  19. BRETARIS [Concomitant]
     Active Substance: ACLIDINIUM BROMIDE
  20. OBINUTUZUMAB. [Suspect]
     Active Substance: OBINUTUZUMAB
     Dosage: ON DAY 1 OF EACH CYCLE (CYCLES 2-6)
     Route: 042
     Dates: start: 20140701, end: 20141202
  21. SIMVASTATIN. [Concomitant]
     Active Substance: SIMVASTATIN
     Route: 065

REACTIONS (4)
  - Febrile neutropenia [Recovered/Resolved]
  - Bronchopulmonary aspergillosis [Recovered/Resolved]
  - Febrile neutropenia [Recovered/Resolved with Sequelae]
  - Bronchitis [Recovered/Resolved]

NARRATIVE: CASE EVENT DATE: 20140622
